FAERS Safety Report 4805788-3 (Version None)
Quarter: 2005Q4

REPORT INFORMATION
  Report Type: 
  Country: None (occurrence: None)
  Receive Date: 20051018
  Receipt Date: 20051018
  Transmission Date: 20060501
  Serious: Yes (Other)
  Sender: FDA-Public Use
  Company Number: None

PATIENT
  Age: 32 Year
  Sex: Female
  Weight: 64.4108 kg

DRUGS (1)
  1. CLINDAMYCIN   150 MG [Suspect]
     Indication: TOOTH ABSCESS
     Dosage: 150MG  4 TIMES A DAY PO
     Route: 048
     Dates: start: 20051012, end: 20051017

REACTIONS (3)
  - CENTRAL NERVOUS SYSTEM STIMULATION [None]
  - INSOMNIA [None]
  - MALAISE [None]
